FAERS Safety Report 9619501 (Version 2)
Quarter: 2013Q4

REPORT INFORMATION
  Report Type: Spontaneous
  Country: US (occurrence: DE)
  Receive Date: 20131014
  Receipt Date: 20131024
  Transmission Date: 20140711
  Serious: Yes (Other)
  Sender: FDA-Public Use
  Company Number: DE-PFIZER INC-2013292283

PATIENT
  Age: 23 Year
  Sex: Male

DRUGS (1)
  1. EPANUTIN [Suspect]
     Dosage: 250 MG, 2X/DAY
     Dates: start: 19661123

REACTIONS (3)
  - Toxicity to various agents [Unknown]
  - Athetosis [Unknown]
  - Ballismus [Unknown]
